FAERS Safety Report 8716533 (Version 2)
Quarter: 2012Q4

REPORT INFORMATION
  Report Type: 
  Country: US (occurrence: US)
  Receive Date: 20120810
  Receipt Date: 20120911
  Transmission Date: 20130627
  Serious: Yes (Hospitalization)
  Sender: FDA-Public Use
  Company Number: US-BIOGENIDEC-2012BI029540

PATIENT
  Age: 28 Year
  Sex: Female

DRUGS (2)
  1. TYSABRI [Suspect]
     Indication: MULTIPLE SCLEROSIS
     Route: 042
     Dates: start: 20071221, end: 20101022
  2. TYSABRI [Suspect]
     Indication: MULTIPLE SCLEROSIS
     Route: 042
     Dates: start: 20110401

REACTIONS (10)
  - Gastroenterostomy [Unknown]
  - Gastrostomy tube insertion [Unknown]
  - Intestinal obstruction [Recovered/Resolved]
  - Dehydration [Recovered/Resolved]
  - Migraine [Unknown]
  - Urinary tract infection [Unknown]
  - Constipation [Unknown]
  - Vomiting [Recovered/Resolved]
  - Haemoglobin decreased [Unknown]
  - Asthenia [Unknown]
